FAERS Safety Report 6194790-8 (Version None)
Quarter: 2009Q2

REPORT INFORMATION
  Report Type: 
  Country: None (occurrence: None)
  Receive Date: 20090515
  Receipt Date: 20090515
  Transmission Date: 20091009
  Serious: No
  Sender: FDA-Public Use
  Company Number: None

PATIENT
  Age: 56 Year
  Sex: Female
  Weight: 74.8435 kg

DRUGS (1)
  1. RISPERDAL [Suspect]
     Indication: BIPOLAR DISORDER
     Dosage: 25 MG Q O WEEK IM
     Route: 030
     Dates: start: 20070220, end: 20080808

REACTIONS (3)
  - HYPOHIDROSIS [None]
  - MULTIPLE SCLEROSIS [None]
  - TEMPERATURE REGULATION DISORDER [None]
